FAERS Safety Report 6440469-4 (Version None)
Quarter: 2009Q4

REPORT INFORMATION
  Report Type: 
  Country: None (occurrence: None)
  Receive Date: 20091112
  Receipt Date: 20091112
  Transmission Date: 20100525
  Serious: Yes (Life-Threatening, Hospitalization, Disabling)
  Sender: FDA-Public Use
  Company Number: None

PATIENT
  Age: 86 Year
  Sex: Male
  Weight: 82.7 kg

DRUGS (17)
  1. MULTAQ [Suspect]
     Indication: ATRIAL FIBRILLATION
     Dosage: 400 MG -1 TAB- BID FOR 1-WEEK PO
     Route: 048
     Dates: start: 20091102, end: 20091109
  2. ASPIRIN [Concomitant]
  3. COREG [Concomitant]
  4. VERAPAMIL EXTENDED-RELEASE [Concomitant]
  5. LASIX [Concomitant]
  6. MINOXIDIL [Concomitant]
  7. LANTUS [Concomitant]
  8. PRANDIN [Concomitant]
  9. NEXIUM [Concomitant]
  10. FLOMAX [Concomitant]
  11. PROSCAR [Concomitant]
  12. SYNTHROID [Concomitant]
  13. AMBIEN CR [Concomitant]
  14. LUNESTA [Concomitant]
  15. TYLENOL [Concomitant]
  16. BACTRIM DS [Concomitant]
  17. PROGRAF [Concomitant]

REACTIONS (1)
  - CARDIAC FAILURE CONGESTIVE [None]
